FAERS Safety Report 7511894-5 (Version None)
Quarter: 2011Q2

REPORT INFORMATION
  Report Type: 
  Country: None (occurrence: None)
  Receive Date: 20110531
  Receipt Date: 20110526
  Transmission Date: 20111010
  Serious: Yes (Other)
  Sender: FDA-Public Use
  Company Number: DE-PFIZER INC-2011113848

PATIENT
  Sex: Female
  Weight: 110 kg

DRUGS (6)
  1. TRAMADOL [Suspect]
     Dosage: 1200 MG, 1X/DAY
     Route: 048
  2. CITALOPRAM [Suspect]
     Indication: DEPRESSION
     Dosage: 20 MG, 1X/DAY
     Route: 048
  3. PARACETAMOL [Concomitant]
     Dosage: 5 - 7.5 G, WEEKLY
     Route: 048
     Dates: end: 20101209
  4. ENALAPRIL [Suspect]
     Indication: HYPERTENSION
     Dosage: 5 MG, 1X/DAY
     Route: 048
  5. CODEINE [Concomitant]
     Dosage: 3 - 4.5 G WEEKLY
     Route: 048
     Dates: end: 20101209
  6. AMLODIPINE BESILATE [Suspect]
     Indication: HYPERTENSION
     Dosage: 10 MG, 1X/DAY
     Route: 048

REACTIONS (2)
  - ABORTION SPONTANEOUS [None]
  - DRUG ABUSE [None]
